FAERS Safety Report 24008915 (Version 1)
Quarter: 2024Q2

REPORT INFORMATION
  Report Type: Spontaneous
  Country: US (occurrence: US)
  Receive Date: 20240625
  Receipt Date: 20240625
  Transmission Date: 20240716
  Serious: No
  Sender: FDA-Public Use
  Company Number: US-JNJFOC-20240660772

PATIENT
  Sex: Female

DRUGS (2)
  1. SPRAVATO [Suspect]
     Active Substance: ESKETAMINE
     Indication: Product used for unknown indication
     Dosage: TWICE A WEEK
  2. SPRAVATO [Suspect]
     Active Substance: ESKETAMINE
     Dosage: TWICE A WEEK

REACTIONS (1)
  - Nausea [Unknown]
